FAERS Safety Report 17870842 (Version 2)
Quarter: 2020Q2

REPORT INFORMATION
  Report Type: Spontaneous
  Country: BE (occurrence: BE)
  Receive Date: 20200608
  Receipt Date: 20200625
  Transmission Date: 20200714
  Serious: Yes (Other)
  Sender: FDA-Public Use
  Company Number: BE-OCTA-GAM09720BE

PATIENT
  Age: 13 Year
  Sex: Female

DRUGS (1)
  1. OCTAGAM IMMUNE GLOBULIN (HUMAN) [Suspect]
     Active Substance: HUMAN IMMUNOGLOBULIN G
     Indication: SYSTEMIC INFLAMMATORY RESPONSE SYNDROME
     Route: 042

REACTIONS (3)
  - Hepatitis B core antibody positive [Unknown]
  - Hepatitis E antibody positive [Unknown]
  - Hepatitis B surface antibody positive [Unknown]

NARRATIVE: CASE EVENT DATE: 20200518
